FAERS Safety Report 7010953-3 (Version None)
Quarter: 2010Q3

REPORT INFORMATION
  Report Type: 
  Country: None (occurrence: None)
  Receive Date: 20100922
  Receipt Date: 20100922
  Transmission Date: 20110219
  Serious: Yes (Other)
  Sender: FDA-Public Use
  Company Number: None

PATIENT
  Age: 30 Year
  Sex: Female
  Weight: 81.6475 kg

DRUGS (1)
  1. MICONAZOLE 3 COMBINATION PACK [Suspect]
     Indication: FUNGAL INFECTION
     Dosage: 1 9G TUBE ONCE VAG
     Route: 067
     Dates: start: 20100919, end: 20100919

REACTIONS (3)
  - APPLICATION SITE PAIN [None]
  - APPLICATION SITE PRURITUS [None]
  - SLEEP DISORDER DUE TO GENERAL MEDICAL CONDITION, INSOMNIA TYPE [None]
